FAERS Safety Report 15698257 (Version 1)
Quarter: 2018Q4

REPORT INFORMATION
  Report Type: Spontaneous
  Country: US (occurrence: US)
  Receive Date: 20181126
  Receipt Date: 20181126
  Transmission Date: 20190205
  Serious: Yes (Death)
  Sender: FDA-Public Use
  Company Number: None

PATIENT
  Age: 47 Year
  Sex: Male

DRUGS (6)
  1. PANTOPRAZOLE [Concomitant]
     Active Substance: PANTOPRAZOLE
  2. PRAVASTATIN. [Concomitant]
     Active Substance: PRAVASTATIN
  3. CARVEDILOL. [Concomitant]
     Active Substance: CARVEDILOL
  4. WARFARIN [Suspect]
     Active Substance: WARFARIN
     Indication: ANTICOAGULANT THERAPY
     Route: 048
     Dates: start: 20130101, end: 20180723
  5. LISINOPRIL. [Concomitant]
     Active Substance: LISINOPRIL
  6. NO DRUG NAME [Concomitant]

REACTIONS (5)
  - Cerebral haemorrhage [None]
  - Mental status changes [None]
  - Muscular weakness [None]
  - International normalised ratio increased [None]
  - Brain midline shift [None]

NARRATIVE: CASE EVENT DATE: 20180723
